FAERS Safety Report 10438311 (Version 2)
Quarter: 2014Q3

REPORT INFORMATION
  Report Type: Spontaneous
  Country: US (occurrence: US)
  Receive Date: 20140908
  Receipt Date: 20140908
  Transmission Date: 20150326
  Serious: Yes (Other)
  Sender: FDA-Public Use
  Company Number: US-BRISTOL-MYERS SQUIBB COMPANY-19143361

PATIENT
  Age: 51 Year
  Sex: Female
  Weight: 63.49 kg

DRUGS (9)
  1. CYMBALTA [Concomitant]
     Active Substance: DULOXETINE HYDROCHLORIDE
     Indication: DEPRESSION
  2. BUPROPION [Concomitant]
     Active Substance: BUPROPION
  3. TRICOR [Concomitant]
     Active Substance: FENOFIBRATE
  4. PREMARIN [Concomitant]
     Active Substance: ESTROGENS, CONJUGATED
  5. ABILIFY [Suspect]
     Active Substance: ARIPIPRAZOLE
     Indication: DEPRESSION
     Dosage: 1 DF=PATIENT TAKING 5MG/DAY BEFORE NOW ON 2.5MG/DAY DOSE
     Route: 048
     Dates: start: 2013
  6. MEVACOR [Concomitant]
     Active Substance: LOVASTATIN
  7. LYRICA [Concomitant]
     Active Substance: PREGABALIN
     Indication: DEPRESSION
  8. VALIUM [Concomitant]
     Active Substance: DIAZEPAM
  9. NORCO [Concomitant]
     Active Substance: ACETAMINOPHEN\HYDROCODONE BITARTRATE

REACTIONS (3)
  - Irritability [Unknown]
  - Suicidal ideation [Unknown]
  - Depression [Unknown]
